FAERS Safety Report 6811226-1 (Version None)
Quarter: 2010Q2

REPORT INFORMATION
  Report Type: 
  Country: None (occurrence: None)
  Receive Date: 20100630
  Receipt Date: 20090922
  Transmission Date: 20101027
  Serious: No
  Sender: FDA-Public Use
  Company Number: US-AMGEN-KDL366112

PATIENT
  Sex: Female
  Weight: 90.8 kg

DRUGS (1)
  1. PROCRIT [Suspect]
     Indication: RENAL FAILURE CHRONIC
     Dates: start: 20090910

REACTIONS (4)
  - DYSGEUSIA [None]
  - EATING DISORDER [None]
  - ERUCTATION [None]
  - VOMITING [None]
